FAERS Safety Report 10262309 (Version 2)
Quarter: 2014Q3

REPORT INFORMATION
  Report Type: Spontaneous
  Country: US (occurrence: US)
  Receive Date: 20140626
  Receipt Date: 20140805
  Transmission Date: 20150326
  Serious: No
  Sender: FDA-Public Use
  Company Number: US-PFIZER INC-2014172361

PATIENT
  Age: 17 Year
  Sex: Female
  Weight: 73.2 kg

DRUGS (4)
  1. ENOXAPARIN [Suspect]
     Active Substance: ENOXAPARIN
     Indication: INTERNATIONAL NORMALISED RATIO DECREASED
     Dosage: 80 MG, 2X/DAY
     Route: 058
     Dates: start: 20140511, end: 20140613
  2. ENOXAPARIN [Suspect]
     Active Substance: ENOXAPARIN
     Indication: DEEP VEIN THROMBOSIS
  3. ZOLOFT [Suspect]
     Active Substance: SERTRALINE HYDROCHLORIDE
     Indication: INTERNATIONAL NORMALISED RATIO DECREASED
     Dosage: UNK
  4. ENOXAPARIN [Suspect]
     Active Substance: ENOXAPARIN
     Indication: PULMONARY EMBOLISM
     Dosage: 80 MG, 2X/DAY
     Route: 058

REACTIONS (2)
  - International normalised ratio abnormal [Recovered/Resolved]
  - Drug ineffective [Unknown]
